FAERS Safety Report 21381963 (Version 2)
Quarter: 2022Q4

REPORT INFORMATION
  Report Type: Spontaneous
  Country: US (occurrence: US)
  Receive Date: 20220927
  Receipt Date: 20221006
  Transmission Date: 20230112
  Serious: Yes (Other)
  Sender: FDA-Public Use
  Company Number: US-ABBVIE-22K-163-4516239-00

PATIENT
  Age: 30 Year
  Sex: Female

DRUGS (1)
  1. ORILISSA [Suspect]
     Active Substance: ELAGOLIX SODIUM
     Indication: Endometriosis
     Route: 048

REACTIONS (9)
  - Hysterectomy [Unknown]
  - Dysmenorrhoea [Unknown]
  - Adverse drug reaction [Unknown]
  - Weight decreased [Unknown]
  - Blood pressure increased [Unknown]
  - Polymenorrhoea [Unknown]
  - Hypophagia [Unknown]
  - Heavy menstrual bleeding [Unknown]
  - Vomiting [Unknown]

NARRATIVE: CASE EVENT DATE: 20220922
